FAERS Safety Report 21555608 (Version 1)
Quarter: 2022Q4

REPORT INFORMATION
  Report Type: Spontaneous
  Country: US (occurrence: None)
  Receive Date: 20221103
  Receipt Date: 20221103
  Transmission Date: 20230112
  Serious: Yes (Hospitalization)
  Sender: FDA-Public Use
  Company Number: None

PATIENT
  Age: 13 Year
  Sex: Female
  Weight: 53.7 kg

DRUGS (3)
  1. INJECTAFER [Suspect]
     Active Substance: FERRIC CARBOXYMALTOSE
     Indication: Iron deficiency anaemia
     Dosage: FREQUENCY : ONCE;?
     Route: 042
     Dates: start: 20221102, end: 20221102
  2. Vitamin D 50 mcg PO daily [Concomitant]
  3. Ferrous Sulfate 650 mg PO daily [Concomitant]

REACTIONS (5)
  - Pruritus [None]
  - Urticaria [None]
  - Dysphagia [None]
  - Wheezing [None]
  - Blood pressure decreased [None]

NARRATIVE: CASE EVENT DATE: 20221102
